FAERS Safety Report 4304966-X (Version None)
Quarter: 2004Q1

REPORT INFORMATION
  Report Type: 
  Country: None (occurrence: None)
  Receive Date: 20040226
  Receipt Date: 20040122
  Transmission Date: 20041129
  Serious: Yes (Other)
  Sender: FDA-Public Use
  Company Number: US-GLAXOSMITHKLINE-A0494692A

PATIENT
  Age: 25 Year
  Sex: Male

DRUGS (1)
  1. WELLBUTRIN [Suspect]
     Dosage: 450MG PER DAY
     Route: 048
     Dates: start: 20030901

REACTIONS (1)
  - GRAND MAL CONVULSION [None]
